FAERS Safety Report 12256940 (Version 1)
Quarter: 2016Q2

REPORT INFORMATION
  Report Type: Spontaneous
  Country: GB (occurrence: GB)
  Receive Date: 20160412
  Receipt Date: 20160412
  Transmission Date: 20160815
  Serious: Yes (Hospitalization)
  Sender: FDA-Public Use
  Company Number: GB-AMGEN-GBRSP2016042661

PATIENT
  Age: 56 Year
  Sex: Female
  Weight: 105 kg

DRUGS (10)
  1. DESUNIN [Concomitant]
     Active Substance: CHOLECALCIFEROL
     Dosage: 1, TAB, DAILY
     Dates: start: 20160208
  2. ASPIRIN. [Concomitant]
     Active Substance: ASPIRIN
     Dosage: 1 TAB, DAILY
     Dates: start: 20151012
  3. ATORVASTATIN [Concomitant]
     Active Substance: ATORVASTATIN
     Dosage: 1, TAB, DAILY
     Dates: start: 20151012
  4. ISOSORBIDE MONONITRATE. [Concomitant]
     Active Substance: ISOSORBIDE MONONITRATE
     Dosage: 1, TAB, DAILY
     Dates: start: 20151012
  5. AMLODIPINE [Suspect]
     Active Substance: AMLODIPINE BESYLATE
     Indication: PRODUCT USED FOR UNKNOWN INDICATION
     Dosage: UNK
     Route: 065
     Dates: start: 20151012, end: 201603
  6. ORLISTAT [Concomitant]
     Active Substance: ORLISTAT
     Dosage: 3, TAB, DAILY
     Dates: start: 20160121
  7. OMEPRAZOLE. [Concomitant]
     Active Substance: OMEPRAZOLE
     Dosage: 1, TAB, DAILY
     Dates: start: 20160107
  8. IVABRADINE [Suspect]
     Active Substance: IVABRADINE
     Indication: PRODUCT USED FOR UNKNOWN INDICATION
     Dosage: 1 TABLET BID
     Route: 065
     Dates: start: 20160229
  9. CANDESARTAN [Concomitant]
     Active Substance: CANDESARTAN
     Dosage: 1, TAB, DAILY
     Dates: start: 20151012
  10. METFORMIN [Concomitant]
     Active Substance: METFORMIN HYDROCHLORIDE
     Dosage: 2, TAB, DAILY
     Dates: start: 20151012

REACTIONS (5)
  - Circumoral oedema [Unknown]
  - Urticaria [Unknown]
  - Hypersensitivity [Unknown]
  - Swelling face [Unknown]
  - Periorbital oedema [Unknown]

NARRATIVE: CASE EVENT DATE: 20160317
